FAERS Safety Report 16978152 (Version 4)
Quarter: 2019Q4

REPORT INFORMATION
  Report Type: Report from Study
  Country: JP (occurrence: JP)
  Receive Date: 20191031
  Receipt Date: 20191202
  Transmission Date: 20200122
  Serious: Yes (Hospitalization)
  Sender: FDA-Public Use
  Company Number: JP-ASTELLAS-2019JP023384

PATIENT
  Age: 70 Year
  Sex: Male

DRUGS (26)
  1. ASP2215 [Suspect]
     Active Substance: GILTERITINIB
     Route: 048
     Dates: start: 20191127
  2. AS3156378 [Suspect]
     Active Substance: AZACITIDINE
     Route: 065
     Dates: start: 20190619, end: 20190623
  3. FUNGUARD [Concomitant]
     Active Substance: MICAFUNGIN SODIUM
     Indication: FEBRILE NEUTROPENIA
     Route: 041
     Dates: start: 20191021
  4. AS3156378 [Suspect]
     Active Substance: AZACITIDINE
     Route: 065
     Dates: start: 20190904, end: 20190908
  5. ANTEBATE [Concomitant]
     Active Substance: BETAMETHASONE DIPROPIONATE
     Indication: RASH
     Dosage: ADEQUATE DOSE, TWICE DAILY
     Route: 065
     Dates: start: 20191009
  6. BICANATE [Concomitant]
     Indication: PROPHYLAXIS AGAINST DEHYDRATION
     Route: 042
     Dates: start: 20191020
  7. AS3156378 [Suspect]
     Active Substance: AZACITIDINE
     Route: 065
     Dates: start: 20191009, end: 20191013
  8. ASP2215 [Suspect]
     Active Substance: GILTERITINIB
     Indication: ACUTE MYELOID LEUKAEMIA
     Route: 048
     Dates: start: 20190418, end: 20190418
  9. ASP2215 [Suspect]
     Active Substance: GILTERITINIB
     Route: 048
     Dates: start: 20190423, end: 20190519
  10. CARTEOLOL HYDROCHLORIDE. [Concomitant]
     Active Substance: CARTEOLOL HYDROCHLORIDE
     Indication: GLAUCOMA
     Dosage: UNK UNK, ONCE DAILY
     Route: 065
     Dates: start: 20160829
  11. MIYA-BM [Concomitant]
     Active Substance: CLOSTRIDIUM BUTYRICUM SPORES STRAIN M-55
     Indication: PROPHYLAXIS
     Route: 048
     Dates: start: 20190412
  12. PANTETHINE [Concomitant]
     Active Substance: PANTETHINE
     Indication: CONSTIPATION
     Dosage: UNK UNK, AS NEEDED
     Route: 048
     Dates: start: 20190507
  13. MAGMITT [Concomitant]
     Active Substance: MAGNESIUM OXIDE
     Indication: CONSTIPATION
     Dosage: UNK UNK, AS NEEDED
     Route: 048
     Dates: start: 20190507
  14. FLUCONAZOLE. [Concomitant]
     Active Substance: FLUCONAZOLE
     Indication: PROPHYLAXIS
     Dosage: 1 DF/DAY, UNKNOWN FREQ.
     Route: 048
     Dates: start: 20190624
  15. ALBUMIN [Concomitant]
     Active Substance: ALBUMIN HUMAN
     Indication: FEBRILE NEUTROPENIA
     Route: 042
     Dates: start: 20191024, end: 20191025
  16. AS3156378 [Suspect]
     Active Substance: AZACITIDINE
     Route: 065
     Dates: start: 20190724, end: 20190728
  17. LASIX [Concomitant]
     Active Substance: FUROSEMIDE
     Indication: FEBRILE NEUTROPENIA
     Route: 042
     Dates: start: 20191024, end: 20191025
  18. ASP2215 [Suspect]
     Active Substance: GILTERITINIB
     Route: 048
     Dates: start: 20190601, end: 20191020
  19. AS3156378 [Suspect]
     Active Substance: AZACITIDINE
     Indication: ACUTE MYELOID LEUKAEMIA
     Route: 065
     Dates: start: 20190418, end: 20190424
  20. URSODEOXYCHOLIC ACID [Concomitant]
     Active Substance: URSODIOL
     Indication: HEPATIC FUNCTION ABNORMAL
     Route: 048
     Dates: start: 20190419
  21. LANSOPRAZOLE. [Concomitant]
     Active Substance: LANSOPRAZOLE
     Indication: GASTRITIS PROPHYLAXIS
     Dosage: 1 DF/DAY, UNKNOWN FREQ.
     Route: 048
     Dates: start: 20190505
  22. PROPETO [Concomitant]
     Active Substance: PETROLATUM
     Indication: RASH
     Dosage: ADEQUATE DOSE, TWICE DAILY
     Route: 065
     Dates: start: 20191009
  23. KENKETU GLOVENIN-I [Concomitant]
     Active Substance: HUMAN IMMUNOGLOBULIN G
     Indication: FEBRILE NEUTROPENIA
     Route: 042
     Dates: start: 20191025
  24. VANCOMYCIN HYDROCHLORIDE. [Concomitant]
     Active Substance: VANCOMYCIN HYDROCHLORIDE
     Indication: FEBRILE NEUTROPENIA
     Dosage: 0.75 G, TWICE DAILY
     Route: 041
     Dates: start: 20191021, end: 20191103
  25. BIOFERMIN                          /01617201/ [Concomitant]
     Active Substance: DIETARY SUPPLEMENT\PROBIOTICS
     Indication: PROPHYLAXIS
     Route: 048
     Dates: start: 20190412
  26. MEROPENEM. [Concomitant]
     Active Substance: MEROPENEM
     Indication: FEBRILE NEUTROPENIA
     Route: 041
     Dates: start: 20191021, end: 20191103

REACTIONS (2)
  - Pneumonia [Recovered/Resolved]
  - Febrile neutropenia [Recovered/Resolved]

NARRATIVE: CASE EVENT DATE: 20191020
